FAERS Safety Report 10005342 (Version 1)
Quarter: 2014Q1

REPORT INFORMATION
  Report Type: Spontaneous
  Country: US (occurrence: US)
  Receive Date: 20140312
  Receipt Date: 20140312
  Transmission Date: 20141002
  Serious: No
  Sender: FDA-Public Use
  Company Number: US-009507513-2011SP053515

PATIENT
  Age: 5 Year
  Sex: Female
  Weight: 24.95 kg

DRUGS (3)
  1. CLARITIN CHEWABLE TABLETS [Suspect]
     Dosage: 10 MG, QD
     Route: 048
  2. CLARITIN CHEWABLE TABLETS [Suspect]
     Dosage: 10 MG, BID
     Route: 048
     Dates: start: 20111113
  3. AMOXIL [Concomitant]
     Indication: PRODUCT USED FOR UNKNOWN INDICATION
     Dosage: UNK UNK, UNKNOWN

REACTIONS (1)
  - Overdose [Recovered/Resolved]
